FAERS Safety Report 12938617 (Version 3)
Quarter: 2016Q4

REPORT INFORMATION
  Report Type: Report from Study
  Country: DE (occurrence: DE)
  Receive Date: 20161114
  Receipt Date: 20161129
  Transmission Date: 20170207
  Serious: Yes (Hospitalization)
  Sender: FDA-Public Use
  Company Number: DE-PFIZER INC-2016511972

PATIENT
  Age: 65 Year
  Sex: Male
  Weight: 73 kg

DRUGS (9)
  1. ALLOPURINOL. [Concomitant]
     Active Substance: ALLOPURINOL
     Indication: BLOOD URIC ACID INCREASED
     Dosage: 100 MG, 1X/DAY
     Route: 048
     Dates: start: 20150804
  2. CLOPIDOGREL [Concomitant]
     Active Substance: CLOPIDOGREL BISULFATE
     Indication: PERIPHERAL ARTERIAL OCCLUSIVE DISEASE
     Dosage: 75 MG, 1X/DAY
     Route: 048
     Dates: start: 201301
  3. HCT DEXCEL [Concomitant]
     Indication: HYPERTENSION
     Dosage: 12.5 MG, 1X/DAY (1/2 TABLET IN THE MORNING)
     Route: 048
     Dates: start: 200707
  4. SIMVASTATIN. [Concomitant]
     Active Substance: SIMVASTATIN
     Indication: HYPERCHOLESTEROLAEMIA
     Dosage: 20 MG, 1X/DAY
     Route: 048
     Dates: start: 2007, end: 20160203
  5. HERZASS [Concomitant]
     Indication: PROPHYLAXIS
     Dosage: 100 MG, 1X/DAY
     Route: 048
     Dates: start: 200707
  6. BOSULIF [Suspect]
     Active Substance: BOSUTINIB MONOHYDRATE
     Indication: CHRONIC MYELOID LEUKAEMIA
     Dosage: 300 MG, 1X/DAY;  3X100 MG IN THE EVENING
     Route: 048
     Dates: start: 20150423
  7. PANTOPRAZOL [Concomitant]
     Active Substance: PANTOPRAZOLE SODIUM
     Indication: PROPHYLAXIS
     Dosage: 20 MG, 1X/DAY
     Route: 048
     Dates: start: 20130218
  8. RAMILICH [Concomitant]
     Active Substance: RAMIPRIL
     Indication: HYPERTENSION
     Dosage: 5 MG, 1X/DAY (1/2 TABLET IN THE MORNING)
     Route: 048
     Dates: start: 20130218
  9. BISOPROLOL [Concomitant]
     Active Substance: BISOPROLOL
     Indication: HYPERTENSION
     Dosage: 2.5 MG, 1X/DAY (1/2 TABLET IN THE MORNING)
     Route: 048
     Dates: start: 200707

REACTIONS (2)
  - Cellulitis [Recovered/Resolved with Sequelae]
  - Arterial restenosis [Recovered/Resolved with Sequelae]

NARRATIVE: CASE EVENT DATE: 20160816
